FAERS Safety Report 18810395 (Version 1)
Quarter: 2021Q1

REPORT INFORMATION
  Report Type: Spontaneous
  Country: AR (occurrence: AR)
  Receive Date: 20210129
  Receipt Date: 20210129
  Transmission Date: 20210419
  Serious: Yes (Hospitalization, Other)
  Sender: FDA-Public Use
  Company Number: AR-PFIZER INC-2021069447

PATIENT
  Age: 55 Year
  Sex: Female

DRUGS (1)
  1. IBRANCE [Suspect]
     Active Substance: PALBOCICLIB
     Indication: BREAST CANCER METASTATIC
     Dosage: 125 MG, DAILY
     Dates: start: 20200210, end: 20201125

REACTIONS (4)
  - Joint dislocation [Unknown]
  - Red blood cell count decreased [Unknown]
  - Arthralgia [Unknown]
  - Post procedural complication [Unknown]

NARRATIVE: CASE EVENT DATE: 202012
